FAERS Safety Report 20865816 (Version 1)
Quarter: 2022Q2

REPORT INFORMATION
  Report Type: Spontaneous
  Country: JP (occurrence: JP)
  Receive Date: 20220524
  Receipt Date: 20220524
  Transmission Date: 20220721
  Serious: Yes (Other)
  Sender: FDA-Public Use
  Company Number: JP-BRISTOL-MYERS SQUIBB COMPANY-2022-044960

PATIENT
  Age: 84 Year
  Sex: Female

DRUGS (2)
  1. VIDAZA [Suspect]
     Active Substance: AZACITIDINE
     Indication: Product used for unknown indication
     Dates: start: 20211221, end: 20211221
  2. VIDAZA [Suspect]
     Active Substance: AZACITIDINE
     Dates: start: 20220202

REACTIONS (4)
  - Blood creatinine increased [Recovered/Resolved]
  - Fibrin D dimer increased [Recovered/Resolved]
  - Renal disorder [Recovered/Resolved]
  - Tumour lysis syndrome [Recovered/Resolved]

NARRATIVE: CASE EVENT DATE: 20211222
